FAERS Safety Report 7374566-6 (Version None)
Quarter: 2011Q1

REPORT INFORMATION
  Report Type: 
  Country: None (occurrence: None)
  Receive Date: 20110325
  Receipt Date: 20100319
  Transmission Date: 20110831
  Serious: No
  Sender: FDA-Public Use
  Company Number: US-MYLANLABS-2010S1004918

PATIENT
  Age: 46 Year
  Sex: Male

DRUGS (2)
  1. FENTANYL-100 [Suspect]
     Indication: ANALGESIC THERAPY
     Dosage: CHANGED Q48H
     Route: 062
     Dates: start: 20070101
  2. METHADONE [Concomitant]
     Route: 048

REACTIONS (1)
  - DRUG SCREEN FALSE POSITIVE [None]
